FAERS Safety Report 23445998 (Version 2)
Quarter: 2024Q1

REPORT INFORMATION
  Report Type: Report from Study
  Country: BR (occurrence: BR)
  Receive Date: 20240126
  Receipt Date: 20240226
  Transmission Date: 20240410
  Serious: Yes (Other)
  Sender: FDA-Public Use
  Company Number: BR-JNJFOC-20240153896

PATIENT
  Age: 40 Year
  Sex: Female
  Weight: 102 kg

DRUGS (7)
  1. SIMPONI [Suspect]
     Active Substance: GOLIMUMAB
     Indication: Rheumatoid arthritis
     Route: 058
  2. SIMPONI [Suspect]
     Active Substance: GOLIMUMAB
  3. BUDESONIDE\FORMOTEROL FUMARATE [Concomitant]
     Active Substance: BUDESONIDE\FORMOTEROL FUMARATE
     Indication: Asthma
     Dosage: 12/400MG
  4. PIETRA [Concomitant]
     Indication: Endometriosis
  5. PREDNISONE [Concomitant]
     Active Substance: PREDNISONE
     Indication: Rheumatoid arthritis
  6. AMITRIPTYLINE HYDROCHLORIDE [Concomitant]
     Active Substance: AMITRIPTYLINE HYDROCHLORIDE
     Indication: Urinary incontinence
  7. LEFLUNOMIDE [Concomitant]
     Active Substance: LEFLUNOMIDE
     Indication: Arthritis

REACTIONS (6)
  - Rheumatoid arthritis [Unknown]
  - Endometriosis [Unknown]
  - COVID-19 [Unknown]
  - Dyspnoea [Unknown]
  - Injection site discolouration [Recovering/Resolving]
  - Gastrointestinal injury [Unknown]

NARRATIVE: CASE EVENT DATE: 20240216
